FAERS Safety Report 8507839-1 (Version None)
Quarter: 2012Q3

REPORT INFORMATION
  Report Type: 
  Country: None (occurrence: None)
  Receive Date: 20120713
  Receipt Date: 20120706
  Transmission Date: 20120928
  Serious: Yes (Hospitalization, Other)
  Sender: FDA-Public Use
  Company Number: PHHY2012BR059208

PATIENT
  Sex: Female
  Weight: 60 kg

DRUGS (5)
  1. DIOVAN [Suspect]
     Indication: HYPERTENSION
     Dosage: 1 DF, DAILY
     Route: 048
  2. FORADIL [Suspect]
     Indication: ASTHMA
  3. MIFLASONA [Suspect]
     Indication: ASTHMA
  4. FORADIL [Suspect]
     Indication: EMPHYSEMA
     Dosage: 1 INHALATION IN THE MORNING AND AT NIGHT
  5. MIFLASONA [Suspect]
     Indication: EMPHYSEMA
     Dosage: 1 INHALATION IN THE MORNING AND AT NIGHT

REACTIONS (2)
  - INFECTION [None]
  - ASTHMA [None]
